FAERS Safety Report 5203557-6 (Version None)
Quarter: 2007Q1

REPORT INFORMATION
  Report Type: 
  Country: None (occurrence: None)
  Receive Date: 20070110
  Receipt Date: 20070109
  Transmission Date: 20070707
  Serious: Yes (Other)
  Sender: FDA-Public Use
  Company Number: US-GLAXOSMITHKLINE-A0634933A

PATIENT
  Sex: Female

DRUGS (4)
  1. ADVAIR DISKUS 100/50 [Suspect]
     Indication: BRONCHITIS
     Dosage: 1PUFF TWICE PER DAY
     Route: 055
     Dates: start: 20061222
  2. ANTIBIOTICS [Concomitant]
  3. COUGH MEDICINE [Concomitant]
  4. ZYRTEC [Concomitant]

REACTIONS (6)
  - CHOKING [None]
  - COUGH [None]
  - DRY MOUTH [None]
  - DYSPHAGIA [None]
  - LOCAL SWELLING [None]
  - VOMITING [None]
